FAERS Safety Report 16240824 (Version 2)
Quarter: 2020Q2

REPORT INFORMATION
  Report Type: Spontaneous
  Country: US (occurrence: US)
  Receive Date: 20190425
  Receipt Date: 20200522
  Transmission Date: 20200713
  Serious: Yes (Hospitalization, Other)
  Sender: FDA-Public Use
  Company Number: US-ASTRAZENECA-2019SE56913

PATIENT
  Sex: Male
  Weight: 98.9 kg

DRUGS (13)
  1. NEXIUM [Suspect]
     Active Substance: ESOMEPRAZOLE MAGNESIUM
     Indication: GASTROOESOPHAGEAL REFLUX DISEASE
     Route: 048
     Dates: start: 201011, end: 201509
  2. ZOLPIDEM [Concomitant]
     Active Substance: ZOLPIDEM TARTRATE
     Indication: INSOMNIA
     Route: 065
     Dates: start: 201409, end: 201610
  3. DOXYCYCLINE. [Concomitant]
     Active Substance: DOXYCYCLINE
     Indication: INFECTION
     Route: 065
     Dates: start: 201202, end: 201203
  4. OMEPRAZOLE. [Suspect]
     Active Substance: OMEPRAZOLE
     Indication: GASTROOESOPHAGEAL REFLUX DISEASE
     Dosage: GENERIC
     Route: 065
     Dates: start: 20150921, end: 20151229
  5. ALPRAZOLAM. [Concomitant]
     Active Substance: ALPRAZOLAM
     Indication: ANXIETY
     Route: 065
     Dates: start: 201302, end: 201610
  6. JANUMET [Concomitant]
     Active Substance: METFORMIN HYDROCHLORIDE\SITAGLIPTIN PHOSPHATE
     Indication: ADVERSE EVENT
     Route: 065
     Dates: start: 201202, end: 201605
  7. PRAVASTATIN. [Concomitant]
     Active Substance: PRAVASTATIN
     Indication: BLOOD CHOLESTEROL INCREASED
     Route: 065
     Dates: start: 201405, end: 201406
  8. ONDANSETRON [Concomitant]
     Active Substance: ONDANSETRON
     Indication: CONSTIPATION
     Route: 065
     Dates: start: 2015
  9. NEXIUM [Suspect]
     Active Substance: ESOMEPRAZOLE MAGNESIUM
     Indication: GASTROOESOPHAGEAL REFLUX DISEASE
     Route: 048
     Dates: start: 20101102, end: 20150727
  10. GLIMEPIRIDE. [Concomitant]
     Active Substance: GLIMEPIRIDE
     Indication: DIABETES MELLITUS
     Route: 065
     Dates: start: 201603, end: 201609
  11. TRADJENTA [Concomitant]
     Active Substance: LINAGLIPTIN
     Indication: DIABETES MELLITUS
     Route: 065
     Dates: start: 201606, end: 201610
  12. METFORMIN [Concomitant]
     Active Substance: METFORMIN HYDROCHLORIDE
     Indication: DIABETES MELLITUS
     Route: 065
     Dates: start: 201011, end: 201012
  13. VITAMIN D [Concomitant]
     Active Substance: VITAMIN D NOS
     Indication: VITAMIN D DEFICIENCY
     Route: 065
     Dates: start: 2013

REACTIONS (2)
  - Chronic kidney disease [Not Recovered/Not Resolved]
  - Acute kidney injury [Unknown]
